FAERS Safety Report 7108227-5 (Version None)
Quarter: 2010Q4

REPORT INFORMATION
  Report Type: 
  Country: None (occurrence: None)
  Receive Date: 20101117
  Receipt Date: 20101112
  Transmission Date: 20110411
  Serious: Yes (Death)
  Sender: FDA-Public Use
  Company Number: PHHY2010JP77248

PATIENT
  Sex: Female

DRUGS (5)
  1. DIOVAN [Suspect]
     Dosage: 80 MG DAILY
     Route: 048
     Dates: start: 20071103
  2. AMLODIPINE [Concomitant]
     Indication: HYPERTENSION
     Dosage: 5 MG, QD
     Route: 048
     Dates: start: 20080719
  3. LIPITOR [Concomitant]
     Dosage: 10 MG
     Route: 048
     Dates: start: 20071102
  4. 8-HOUR BAYER [Concomitant]
     Dosage: 100 MG
     Route: 048
     Dates: start: 20071102
  5. KOSO-SAN [Concomitant]
     Dosage: 7. 5MG
     Route: 048
     Dates: start: 20071102

REACTIONS (2)
  - CARDIO-RESPIRATORY ARREST [None]
  - MYOCARDIAL INFARCTION [None]
